FAERS Safety Report 7813370-9 (Version None)
Quarter: 2011Q4

REPORT INFORMATION
  Report Type: 
  Country: None (occurrence: None)
  Receive Date: 20111014
  Receipt Date: 20111013
  Transmission Date: 20120403
  Serious: Yes (Hospitalization)
  Sender: FDA-Public Use
  Company Number: FR-BRISTOL-MYERS SQUIBB COMPANY-16138729

PATIENT
  Age: 78 Year
  Sex: Female
  Weight: 90 kg

DRUGS (11)
  1. PRAVASTATIN [Concomitant]
  2. REPAGLINIDE [Concomitant]
  3. LANTUS [Concomitant]
  4. LASIX [Concomitant]
  5. PERINDOPRIL ERBUMINE [Concomitant]
  6. COUMADIN [Suspect]
     Dosage: FOR A LONG TIME
     Route: 048
     Dates: end: 20110828
  7. MOVIPREP [Concomitant]
  8. CORDARONE [Concomitant]
  9. CITALOPRAM HYDROBROMIDE [Concomitant]
  10. ACETAMINOPHEN AND TRAMADOL HCL [Concomitant]
  11. METFORMIN HCL [Concomitant]

REACTIONS (9)
  - CONJUNCTIVAL HAEMORRHAGE [None]
  - INTERNATIONAL NORMALISED RATIO INCREASED [None]
  - HAEMARTHROSIS [None]
  - DYSPNOEA [None]
  - COUGH [None]
  - ATRIAL FIBRILLATION [None]
  - HYPOTENSION [None]
  - FALL [None]
  - CEREBRAL HAEMATOMA [None]
